FAERS Safety Report 10215665 (Version 1)
Quarter: 2014Q2

REPORT INFORMATION
  Report Type: Spontaneous
  Country: US (occurrence: US)
  Receive Date: 20140604
  Receipt Date: 20140604
  Transmission Date: 20141212
  Serious: Yes (Other)
  Sender: FDA-Public Use
  Company Number: US-AMGEN INC.-USASP2014040920

PATIENT
  Age: 65 Year
  Sex: Female

DRUGS (1)
  1. ENBREL [Suspect]
     Indication: RHEUMATOID ARTHRITIS
     Dosage: 25 MG, 2 TIMES/WK
     Route: 065
     Dates: start: 20000901

REACTIONS (7)
  - Spinal fracture [Not Recovered/Not Resolved]
  - Rib fracture [Recovered/Resolved]
  - Dizziness [Recovered/Resolved]
  - Fall [Recovered/Resolved]
  - Back disorder [Not Recovered/Not Resolved]
  - Nerve compression [Not Recovered/Not Resolved]
  - Herpes zoster [Recovered/Resolved]
